FAERS Safety Report 4678529-0 (Version None)
Quarter: 2005Q2

REPORT INFORMATION
  Report Type: 
  Country: None (occurrence: None)
  Receive Date: 20050601
  Receipt Date: 20020516
  Transmission Date: 20051028
  Serious: Yes (Hospitalization, Disabling, Other)
  Sender: FDA-Public Use
  Company Number: US-MERCK-0205USA02082

PATIENT
  Age: 67 Year
  Sex: Female

DRUGS (2)
  1. VIOXX [Suspect]
     Indication: ARTHRITIS
     Route: 048
     Dates: start: 20010101
  2. VIOXX [Suspect]
     Indication: PAIN
     Route: 048
     Dates: start: 20010101

REACTIONS (62)
  - ACUTE PRERENAL FAILURE [None]
  - ACUTE RESPIRATORY FAILURE [None]
  - ADJUSTMENT DISORDER WITH DEPRESSED MOOD [None]
  - ALCOHOLISM [None]
  - ANAEMIA [None]
  - ANXIETY [None]
  - ARTHRALGIA [None]
  - ASTHENIA [None]
  - ATRIOVENTRICULAR BLOCK COMPLETE [None]
  - BLOOD UREA INCREASED [None]
  - BRADYCARDIA [None]
  - BUNDLE BRANCH BLOCK [None]
  - CARDIAC FAILURE CONGESTIVE [None]
  - CARDIOMYOPATHY [None]
  - CATHETER RELATED COMPLICATION [None]
  - CELLULITIS [None]
  - CERVICOBRACHIAL SYNDROME [None]
  - CONDITION AGGRAVATED [None]
  - CONSTIPATION [None]
  - CORONARY ARTERY DISEASE [None]
  - DEHYDRATION [None]
  - DEPRESSION [None]
  - DIFFICULTY IN WALKING [None]
  - DIZZINESS [None]
  - DRUG HYPERSENSITIVITY [None]
  - DRUG INEFFECTIVE [None]
  - EPICONDYLITIS [None]
  - FALL [None]
  - FEELING ABNORMAL [None]
  - GASTROOESOPHAGEAL REFLUX DISEASE [None]
  - HYPERLIPIDAEMIA [None]
  - HYPERSENSITIVITY [None]
  - HYPOTENSION [None]
  - HYPOXIC ENCEPHALOPATHY [None]
  - INJURY [None]
  - JOINT CONTRACTURE [None]
  - JOINT INJURY [None]
  - LACERATION [None]
  - LUNG INFILTRATION [None]
  - MITRAL VALVE INCOMPETENCE [None]
  - MYOCARDIAL INFARCTION [None]
  - NECK PAIN [None]
  - NEUROGENIC BLADDER [None]
  - NEUROGENIC BOWEL [None]
  - OEDEMA PERIPHERAL [None]
  - PARAPLEGIA [None]
  - PERIPHERAL VASCULAR DISORDER [None]
  - POST-TRAUMATIC STRESS DISORDER [None]
  - PULMONARY OEDEMA [None]
  - QUADRIPLEGIA [None]
  - ROAD TRAFFIC ACCIDENT [None]
  - ROTATOR CUFF SYNDROME [None]
  - SHOULDER PAIN [None]
  - SINUS BRADYCARDIA [None]
  - SOMNOLENCE [None]
  - SPINAL CORD INJURY [None]
  - TRANSFUSION REACTION [None]
  - ULCER [None]
  - URINARY INCONTINENCE [None]
  - URINARY TRACT INFECTION [None]
  - UROSEPSIS [None]
  - WOUND INFECTION [None]
